FAERS Safety Report 7285170-2 (Version None)
Quarter: 2011Q1

REPORT INFORMATION
  Report Type: 
  Country: None (occurrence: None)
  Receive Date: 20110210
  Receipt Date: 20110131
  Transmission Date: 20110831
  Serious: Yes (Other)
  Sender: FDA-Public Use
  Company Number: FR-JNJFOC-20110201242

PATIENT
  Age: 82 Year
  Sex: Female

DRUGS (6)
  1. NITROGLYCERIN [Concomitant]
     Route: 065
  2. DAKTARIN [Suspect]
     Indication: CANDIDIASIS
     Dosage: 6 TABLETS DAILY
     Route: 065
  3. DEXTROPROPOXYPHENE HYDROCHLORIDE [Concomitant]
     Route: 065
  4. SINTROM [Interacting]
     Indication: MYOCARDIAL INFARCTION
     Dosage: 2 MG AND 3 MG ON ALTERNATIVE DAYS
     Route: 065
  5. DAKTARIN [Suspect]
     Indication: VULVITIS
     Dosage: 6 TABLETS DAILY
     Route: 065
  6. PINDOLOL [Concomitant]
     Route: 065

REACTIONS (6)
  - ECCHYMOSIS [None]
  - APHONIA [None]
  - DRUG INTERACTION [None]
  - HAEMATOMA [None]
  - KAOLIN CEPHALIN CLOTTING TIME PROLONGED [None]
  - DYSPNOEA [None]
